FAERS Safety Report 21706087 (Version 1)
Quarter: 2022Q4

REPORT INFORMATION
  Report Type: Spontaneous
  Country: US (occurrence: None)
  Receive Date: 20221209
  Receipt Date: 20221209
  Transmission Date: 20230113
  Serious: No
  Sender: FDA-Public Use
  Company Number: 2022A392429

PATIENT
  Age: 20576 Day

DRUGS (6)
  1. CRESTOR [Suspect]
     Active Substance: ROSUVASTATIN CALCIUM
     Route: 048
  2. PREMARIN [Suspect]
     Active Substance: ESTROGENS, CONJUGATED
     Indication: Blood oestrogen decreased
     Route: 048
  3. CODEINE [Concomitant]
     Active Substance: CODEINE
  4. DOXYCYCLINE [Concomitant]
     Active Substance: DOXYCYCLINE
  5. GLUTEN [Concomitant]
     Active Substance: WHEAT GLUTEN
  6. MORPHINE [Concomitant]
     Active Substance: MORPHINE

REACTIONS (1)
  - Oedema [Unknown]

NARRATIVE: CASE EVENT DATE: 20221123
